FAERS Safety Report 24540669 (Version 1)
Quarter: 2024Q4

REPORT INFORMATION
  Report Type: Report from Study
  Country: DE (occurrence: DE)
  Receive Date: 20241023
  Receipt Date: 20241023
  Transmission Date: 20250115
  Serious: Yes (Other)
  Sender: AMGEN
  Company Number: DE-ROCHE-10000097946

PATIENT
  Age: 59 Year
  Sex: Male
  Weight: 135 kg

DRUGS (3)
  1. PANITUMUMAB [Suspect]
     Active Substance: PANITUMUMAB
     Indication: Neoplasm malignant
     Dosage: 532 MILLIGRAM, Q2WK
     Route: 040
     Dates: start: 20240205, end: 20240611
  2. OXALIPLATIN [Suspect]
     Active Substance: OXALIPLATIN
     Indication: Neoplasm malignant
     Route: 040
     Dates: start: 20240205, end: 20240423
  3. FLUOROURACIL [Suspect]
     Active Substance: FLUOROURACIL
     Indication: Neoplasm malignant
     Route: 040
     Dates: start: 20240205, end: 20240611

REACTIONS (1)
  - Thrombocytopenia [Recovered/Resolved]

NARRATIVE: CASE EVENT DATE: 20240416
